FAERS Safety Report 6203516-0 (Version None)
Quarter: 2009Q2

REPORT INFORMATION
  Report Type: 
  Country: None (occurrence: None)
  Receive Date: 20090527
  Receipt Date: 20090519
  Transmission Date: 20091009
  Serious: Yes (Other)
  Sender: FDA-Public Use
  Company Number: PHHY2009MX19422

PATIENT
  Age: 77 Year
  Sex: Female

DRUGS (1)
  1. ACLASTA [Suspect]
     Indication: OSTEOPOROSIS
     Dosage: 1INJECTION (5 MG/100 MG) PER DAY
     Route: 042
     Dates: start: 20070801

REACTIONS (2)
  - DISLOCATION OF VERTEBRA [None]
  - PAIN [None]
